FAERS Safety Report 6221430-1 (Version None)
Quarter: 2009Q2

REPORT INFORMATION
  Report Type: 
  Country: None (occurrence: None)
  Receive Date: 20090610
  Receipt Date: 20090529
  Transmission Date: 20091009
  Serious: Yes (Other)
  Sender: FDA-Public Use
  Company Number: IN-PURDUE-USA_2009_0038122

PATIENT
  Age: 32 Year
  Sex: Male

DRUGS (6)
  1. TRAMADOL HCL [Suspect]
     Indication: ARTHRALGIA
     Dosage: UNK
     Dates: start: 20080926
  2. CETRIZINE [Suspect]
     Indication: HYPERSENSITIVITY
  3. ALBENDAZOLE [Concomitant]
  4. PHENYTOIN [Concomitant]
  5. CORTICOSTEROIDS [Concomitant]
     Route: 048
  6. RANITIDINE [Concomitant]

REACTIONS (4)
  - AGGRESSION [None]
  - DELIRIUM [None]
  - HYPERHIDROSIS [None]
  - TACHYCARDIA [None]
